FAERS Safety Report 8836662 (Version 1)
Quarter: 2012Q4

REPORT INFORMATION
  Report Type: Spontaneous
  Country: US (occurrence: None)
  Receive Date: 20121010
  Receipt Date: 20121010
  Transmission Date: 20130627
  Serious: Yes (Other)
  Sender: FDA-Public Use
  Company Number: AUR-APL-2012-04364

PATIENT
  Age: 87 Year
  Sex: Male

DRUGS (1)
  1. MIRTAZAPINE [Suspect]
     Indication: DEPRESSION
     Dosage: at night

REACTIONS (4)
  - Unresponsive to stimuli [None]
  - Balance disorder [None]
  - Mental status changes [None]
  - Hyperreflexia [None]
